FAERS Safety Report 13940064 (Version 4)
Quarter: 2017Q3

REPORT INFORMATION
  Report Type: Spontaneous
  Country: US (occurrence: US)
  Receive Date: 20170906
  Receipt Date: 20170927
  Transmission Date: 20171127
  Serious: Yes (Hospitalization)
  Sender: FDA-Public Use
  Company Number: US-LUNDBECK-DKLU2036096

PATIENT
  Age: 55 Year
  Sex: Female

DRUGS (2)
  1. NORTHERA [Suspect]
     Active Substance: DROXIDOPA
     Indication: ORTHOSTATIC HYPOTENSION
     Route: 048
     Dates: start: 20170811
  2. NORTHERA [Suspect]
     Active Substance: DROXIDOPA
     Indication: AUTONOMIC NEUROPATHY
     Dosage: SCHEDULE C
     Route: 048

REACTIONS (8)
  - Vomiting [Unknown]
  - Diarrhoea [Unknown]
  - Sepsis [Unknown]
  - Drug dose omission [Unknown]
  - Malaise [Unknown]
  - Feeding disorder [Unknown]
  - Subcutaneous abscess [Unknown]
  - Nausea [Unknown]

NARRATIVE: CASE EVENT DATE: 20170822
